FAERS Safety Report 17027862 (Version 1)
Quarter: 2019Q4

REPORT INFORMATION
  Report Type: Spontaneous
  Country: US (occurrence: US)
  Receive Date: 20191010
  Receipt Date: 20191010
  Transmission Date: 20200122
  Serious: Yes (Hospitalization)
  Sender: FDA-Public Use
  Company Number: None

PATIENT
  Sex: Female

DRUGS (1)
  1. CIMZIA [Suspect]
     Active Substance: CERTOLIZUMAB PEGOL
     Indication: CROHN^S DISEASE
     Dosage: ?          OTHER FREQUENCY:EVERY TWO WEEKS;?
     Route: 058
     Dates: start: 20190330

REACTIONS (3)
  - Diarrhoea [None]
  - Crohn^s disease [None]
  - Abdominal pain upper [None]
